FAERS Safety Report 19685060 (Version 1)
Quarter: 2021Q3

REPORT INFORMATION
  Report Type: Spontaneous
  Country: US (occurrence: US)
  Receive Date: 20210811
  Receipt Date: 20210811
  Transmission Date: 20211014
  Serious: Yes (Other)
  Sender: FDA-Public Use
  Company Number: US-BAYER-2021-188910

PATIENT
  Age: 59 Year
  Sex: Female
  Weight: 61.69 kg

DRUGS (1)
  1. ALEVE [Suspect]
     Active Substance: NAPROXEN SODIUM
     Dosage: 2 DF
     Dates: start: 2011

REACTIONS (3)
  - Drug hypersensitivity [None]
  - Eye movement disorder [None]
  - Loss of consciousness [None]

NARRATIVE: CASE EVENT DATE: 2011
